FAERS Safety Report 14433521 (Version 1)
Quarter: 2018Q1

REPORT INFORMATION
  Report Type: Spontaneous
  Country: US (occurrence: US)
  Receive Date: 20180124
  Receipt Date: 20180124
  Transmission Date: 20180509
  Serious: No
  Sender: FDA-Public Use
  Company Number: US-PCCINC-T201702207

PATIENT

DRUGS (13)
  1. PRILOSEC [Concomitant]
     Active Substance: OMEPRAZOLE MAGNESIUM
  2. CHLORIDE [Concomitant]
     Active Substance: CHLORIDE ION
  3. VALIUM [Concomitant]
     Active Substance: DIAZEPAM
     Dosage: 10 MG
     Dates: start: 20131015
  4. GABLOFEN [Suspect]
     Active Substance: BACLOFEN
     Dosage: 643.9 ?G, QD
     Route: 037
     Dates: start: 20170317
  5. HUMALOG [Concomitant]
     Active Substance: INSULIN LISPRO
  6. VALIUM [Concomitant]
     Active Substance: DIAZEPAM
     Dosage: 5 MG
     Dates: start: 20131230
  7. LANTUS [Concomitant]
     Active Substance: INSULIN GLARGINE
  8. BACLOFEN. [Concomitant]
     Active Substance: BACLOFEN
     Dosage: 10 MG TABLET
     Route: 048
     Dates: start: 20161107
  9. DILANTIN [Concomitant]
     Active Substance: PHENYTOIN
  10. FOSAMAX [Concomitant]
     Active Substance: ALENDRONATE SODIUM
  11. LISINOPRIL. [Concomitant]
     Active Substance: LISINOPRIL
  12. OXYBUTYNIN. [Concomitant]
     Active Substance: OXYBUTYNIN CHLORIDE
  13. GABLOFEN [Suspect]
     Active Substance: BACLOFEN
     Indication: MUSCLE SPASTICITY
     Dosage: 730 ?G, QD
     Route: 037

REACTIONS (4)
  - Device issue [Unknown]
  - Tenderness [Unknown]
  - Muscle spasticity [Recovering/Resolving]
  - Muscular weakness [Unknown]
